FAERS Safety Report 9802857 (Version 1)
Quarter: 2014Q1

REPORT INFORMATION
  Report Type: Spontaneous
  Country: US (occurrence: None)
  Receive Date: 20140106
  Receipt Date: 20140106
  Transmission Date: 20141002
  Serious: Yes (Other)
  Sender: FDA-Public Use
  Company Number: None

PATIENT
  Age: 36 Year
  Sex: Female
  Weight: 58.06 kg

DRUGS (1)
  1. MEFLOQUINE [Suspect]
     Indication: MALARIA PROPHYLAXIS
     Dosage: MEFLOQUINE 250 MG  ONCE DAILY  TAKEN BY MOUTH
     Route: 048
     Dates: start: 20131212, end: 20131222

REACTIONS (5)
  - Feeling abnormal [None]
  - Dizziness [None]
  - Nausea [None]
  - Vomiting [None]
  - Asthenia [None]
